FAERS Safety Report 9888085 (Version 1)
Quarter: 2014Q1

REPORT INFORMATION
  Report Type: Spontaneous
  Country: CH (occurrence: CH)
  Receive Date: 20140211
  Receipt Date: 20140211
  Transmission Date: 20141002
  Serious: Yes (Hospitalization, Other)
  Sender: FDA-Public Use
  Company Number: CH-ELI_LILLY_AND_COMPANY-CH201401011659

PATIENT
  Age: 85 Year
  Sex: Male

DRUGS (14)
  1. CYMBALTA [Suspect]
     Indication: DEPRESSION
     Dosage: 60 MG, QD
     Route: 048
  2. TILUR [Suspect]
     Indication: PAIN
     Dosage: 90 MG, QD
     Route: 048
     Dates: start: 20131209, end: 20131213
  3. PANTOPRAZOLE [Suspect]
     Indication: PROPHYLACTIC CHEMOTHERAPY
     Dosage: 20 MG, QD
     Route: 048
     Dates: start: 20131209, end: 20131213
  4. METFORMINE [Suspect]
     Indication: TYPE 2 DIABETES MELLITUS
     Dosage: 500 MG, BID
     Route: 048
  5. MST [Suspect]
     Indication: PAIN
     Dosage: 10 MG, QD
     Route: 048
  6. SEROQUEL [Suspect]
     Indication: DEMENTIA
     Dosage: 200 MG, QD
     Route: 048
  7. HALDOL /00027401/ [Suspect]
     Indication: DEMENTIA
     Dosage: 0.5 MG, TID
     Route: 048
  8. DISTRANEURIN /00027501/ [Suspect]
     Indication: INSOMNIA
     Dosage: 300 MG, QD
     Route: 048
  9. EBIXA [Suspect]
     Indication: DEMENTIA
     Dosage: 20 MG, QD
     Route: 048
  10. METO ZEROK [Concomitant]
     Indication: ATRIAL FIBRILLATION
     Dosage: 12.5 MG, QD
     Route: 048
  11. METO ZEROK [Concomitant]
     Indication: ATRIAL FLUTTER
  12. SINOTROM [Concomitant]
     Indication: ATRIAL FIBRILLATION
     Dosage: 1 MG, (SELON TP)
     Route: 048
  13. SINOTROM [Concomitant]
     Indication: ATRIAL FLUTTER
  14. DAFALGAN [Concomitant]
     Indication: PAIN
     Dosage: 1000 MG, TID
     Route: 048

REACTIONS (9)
  - Delirium [Recovering/Resolving]
  - Confusional state [Recovering/Resolving]
  - Type I hypersensitivity [Recovered/Resolved]
  - Rash erythematous [Recovered/Resolved]
  - Renal failure chronic [Recovered/Resolved]
  - Anaemia [Unknown]
  - C-reactive protein increased [Unknown]
  - Hyperkalaemia [Recovered/Resolved]
  - Drug prescribing error [Recovered/Resolved]
